FAERS Safety Report 6683677-X (Version None)
Quarter: 2010Q2

REPORT INFORMATION
  Report Type: 
  Country: None (occurrence: None)
  Receive Date: 20100416
  Receipt Date: 20100409
  Transmission Date: 20101027
  Serious: Yes (Hospitalization)
  Sender: FDA-Public Use
  Company Number: US-BIOGENIDEC-2010BI009941

PATIENT
  Age: 61 Year
  Sex: Female

DRUGS (1)
  1. AVONEX [Suspect]
     Indication: MULTIPLE SCLEROSIS
     Route: 030
     Dates: start: 20031001

REACTIONS (5)
  - INJURY [None]
  - PELVIC FRACTURE [None]
  - RESPIRATORY TRACT INFECTION [None]
  - RIB FRACTURE [None]
  - ROAD TRAFFIC ACCIDENT [None]
